FAERS Safety Report 10040636 (Version 2)
Quarter: 2014Q3

REPORT INFORMATION
  Report Type: Spontaneous
  Country: US (occurrence: US)
  Receive Date: 20140327
  Receipt Date: 20140902
  Transmission Date: 20150326
  Serious: Yes (Death, Hospitalization)
  Sender: FDA-Public Use
  Company Number: US-BAYER-2014-045654

PATIENT
  Age: 35 Year
  Sex: Female
  Weight: 92.97 kg

DRUGS (9)
  1. OCELLA [Suspect]
     Active Substance: DROSPIRENONE\ETHINYL ESTRADIOL
     Indication: ACNE
     Dosage: UNK
     Dates: start: 201201, end: 201203
  2. RANITIDINE [Concomitant]
     Active Substance: RANITIDINE\RANITIDINE HYDROCHLORIDE
     Dosage: 150 MG, UNK
     Dates: start: 20120112, end: 201203
  3. LASIX [Concomitant]
     Active Substance: FUROSEMIDE
  4. ZOMETA [Concomitant]
     Active Substance: ZOLEDRONIC ACID
  5. PROTONIX [Concomitant]
     Active Substance: PANTOPRAZOLE SODIUM
  6. AREDIA [Concomitant]
     Active Substance: PAMIDRONATE DISODIUM
  7. NAPROSYN [Concomitant]
     Active Substance: NAPROXEN
     Dosage: 250 MG, BID
  8. NORCO [Concomitant]
     Active Substance: ACETAMINOPHEN\HYDROCODONE BITARTRATE
  9. ADVAIR HFA [Concomitant]
     Active Substance: FLUTICASONE PROPIONATE\SALMETEROL XINAFOATE

REACTIONS (3)
  - Pain [Fatal]
  - Pulmonary embolism [Fatal]
  - Deep vein thrombosis [Fatal]

NARRATIVE: CASE EVENT DATE: 20120316
